FAERS Safety Report 16424757 (Version 1)
Quarter: 2019Q2

REPORT INFORMATION
  Report Type: Spontaneous
  Country: CN (occurrence: CN)
  Receive Date: 20190613
  Receipt Date: 20190613
  Transmission Date: 20190711
  Serious: Yes (Hospitalization, Other)
  Sender: FDA-Public Use
  Company Number: CN-PFIZER INC-2019247569

PATIENT
  Age: 66 Year
  Sex: Male

DRUGS (6)
  1. LINEZOLID. [Concomitant]
     Active Substance: LINEZOLID
     Indication: ANTI-INFECTIVE THERAPY
     Dosage: UNK
     Dates: start: 20190501, end: 20190502
  2. VFEND [Suspect]
     Active Substance: VORICONAZOLE
     Indication: LUNG INFECTION
     Dosage: 332 MG, 2X/DAY
     Route: 041
     Dates: start: 20190501, end: 20190503
  3. SODIUM CHLORIDE. [Concomitant]
     Active Substance: SODIUM CHLORIDE
     Indication: VEHICLE SOLUTION USE
     Dosage: 500.000 ML, 2X/DAY
     Route: 041
     Dates: start: 20190501, end: 20190503
  4. DAPTOMYCIN. [Concomitant]
     Active Substance: DAPTOMYCIN
     Indication: SOFT TISSUE INFECTION
  5. MEROPENEM. [Concomitant]
     Active Substance: MEROPENEM
     Indication: ANTI-INFECTIVE THERAPY
     Dosage: UNK
     Dates: start: 20190501
  6. DAPTOMYCIN. [Concomitant]
     Active Substance: DAPTOMYCIN
     Indication: ANTI-INFECTIVE THERAPY
     Dosage: UNK
     Dates: start: 20190502

REACTIONS (3)
  - Dysphoria [Recovered/Resolved]
  - Disorganised speech [Recovered/Resolved]
  - Hallucination [Recovered/Resolved]

NARRATIVE: CASE EVENT DATE: 20190502
